FAERS Safety Report 25134006 (Version 2)
Quarter: 2025Q2

REPORT INFORMATION
  Report Type: Spontaneous
  Country: US (occurrence: US)
  Receive Date: 20250328
  Receipt Date: 20250430
  Transmission Date: 20250717
  Serious: Yes (Other)
  Sender: UROGEN PHARMA
  Company Number: US-UROGEN PHARMA LTD.-2025-UGN-000045

PATIENT

DRUGS (4)
  1. JELMYTO [Suspect]
     Active Substance: MITOMYCIN
     Indication: Transitional cell cancer of the renal pelvis and ureter
     Dates: start: 20250227, end: 20250227
  2. JELMYTO [Suspect]
     Active Substance: MITOMYCIN
     Dates: start: 20250306, end: 20250306
  3. JELMYTO [Suspect]
     Active Substance: MITOMYCIN
     Dates: start: 20250313, end: 20250313
  4. JELMYTO [Suspect]
     Active Substance: MITOMYCIN
     Dates: start: 20250320, end: 20250320

REACTIONS (1)
  - Ureteric perforation [Unknown]

NARRATIVE: CASE EVENT DATE: 20250320
